FAERS Safety Report 9448816 (Version 1)
Quarter: 2013Q3

REPORT INFORMATION
  Report Type: Spontaneous
  Country: US (occurrence: US)
  Receive Date: 20130808
  Receipt Date: 20130808
  Transmission Date: 20140515
  Serious: Yes (Hospitalization)
  Sender: FDA-Public Use
  Company Number: US-BAYER-2013-095381

PATIENT
  Age: 32 Year
  Sex: Female

DRUGS (9)
  1. YASMIN [Suspect]
  2. MULTIVITAMIN [Concomitant]
     Dosage: UNK
     Dates: start: 20090807
  3. MEPROZINE [Concomitant]
  4. ALPRAZOLAM [Concomitant]
  5. FLUCONAZOLE [Concomitant]
  6. NYSTOP [Concomitant]
  7. CEPHALEXIN [Concomitant]
  8. CYCLOBENZAPRINE [Concomitant]
  9. SUPRANE [Concomitant]
     Dosage: UNK
     Dates: start: 20060807

REACTIONS (2)
  - Deep vein thrombosis [None]
  - Pulmonary embolism [None]
